FAERS Safety Report 5935858-8 (Version None)
Quarter: 2008Q4

REPORT INFORMATION
  Report Type: 
  Country: None (occurrence: None)
  Receive Date: 20081030
  Receipt Date: 20081025
  Transmission Date: 20090506
  Serious: Yes (Other)
  Sender: FDA-Public Use
  Company Number: ES-ABBOTT-08P-144-0484269-00

PATIENT
  Age: 12 Year
  Sex: Male

DRUGS (1)
  1. CIPRALEX FILM-COATED TABLETS [Suspect]
     Indication: DEPRESSION
     Route: 048
     Dates: start: 20080901

REACTIONS (1)
  - HALLUCINATION, VISUAL [None]
